FAERS Safety Report 5050202-9 (Version None)
Quarter: 2006Q3

REPORT INFORMATION
  Report Type: 
  Country: None (occurrence: None)
  Receive Date: 20060713
  Receipt Date: 20020521
  Transmission Date: 20061208
  Serious: Yes (Hospitalization)
  Sender: FDA-Public Use
  Company Number: US-BRISTOL-MYERS SQUIBB COMPANY-11870003

PATIENT
  Age: 43 Year
  Sex: Male
  Weight: 95 kg

DRUGS (5)
  1. PROLIXIN DECANOATE [Suspect]
     Indication: SCHIZOPHRENIA
     Dosage: DOSAGE DECREASED FROM 25MG/WK TO 12.5MG/WK ^2 MONTHS AGO^
  2. RISPERDAL [Concomitant]
  3. ZYPREXA [Concomitant]
     Dosage: FOR A SHORT TIME
  4. COGENTIN [Concomitant]
     Dosage: ^FOR MANY YEARS^
  5. PAXIL [Concomitant]

REACTIONS (5)
  - FATIGUE [None]
  - ILLOGICAL THINKING [None]
  - MENTAL DISORDER [None]
  - SOMNOLENCE [None]
  - TREMOR [None]
